FAERS Safety Report 22193583 (Version 1)
Quarter: 2023Q2

REPORT INFORMATION
  Report Type: Spontaneous
  Country: GB (occurrence: GB)
  Receive Date: 20230410
  Receipt Date: 20230410
  Transmission Date: 20230722
  Serious: Yes (Disabling, Other)
  Sender: FDA-Public Use
  Company Number: GB-MHRA-MED-202303301352184850-JGZVD

PATIENT
  Sex: Male

DRUGS (1)
  1. GALCANEZUMAB [Suspect]
     Active Substance: GALCANEZUMAB
     Indication: Cluster headache
     Dosage: UNK, UNKNOWN
     Route: 065

REACTIONS (1)
  - Chronic fatigue syndrome [Not Recovered/Not Resolved]
